FAERS Safety Report 22625312 (Version 2)
Quarter: 2023Q4

REPORT INFORMATION
  Report Type: Spontaneous
  Country: JP (occurrence: JP)
  Receive Date: 20230621
  Receipt Date: 20231130
  Transmission Date: 20240110
  Serious: Yes (Death, Other)
  Sender: FDA-Public Use
  Company Number: JP-ABBVIE-5298839

PATIENT
  Age: 30 Year
  Sex: Female

DRUGS (2)
  1. VENCLEXTA [Suspect]
     Active Substance: VENETOCLAX
     Indication: Acute myeloid leukaemia
     Dosage: DURATION TEXT: 1 CYCLE
     Route: 048
  2. AZACITIDINE [Concomitant]
     Active Substance: AZACITIDINE
     Indication: Acute myeloid leukaemia
     Dosage: DURATION TEXT: 1 CYCLE
     Route: 058

REACTIONS (6)
  - Acute myeloid leukaemia [Fatal]
  - Anaemia [Unknown]
  - Febrile neutropenia [Unknown]
  - Platelet count decreased [Unknown]
  - Cord blood transplant therapy [Unknown]
  - Neutrophil count decreased [Unknown]
